FAERS Safety Report 9349240 (Version 1)
Quarter: 2013Q2

REPORT INFORMATION
  Report Type: Other
  Country: IR (occurrence: IR)
  Receive Date: 20130614
  Receipt Date: 20130614
  Transmission Date: 20140414
  Serious: Yes (Hospitalization)
  Sender: FDA-Public Use
  Company Number: IR-BRISTOL-MYERS SQUIBB COMPANY-19012095

PATIENT
  Age: 14 Year
  Sex: Male
  Weight: 52 kg

DRUGS (2)
  1. WARFARIN SODIUM [Suspect]
     Route: 048
  2. CLOXACILLIN [Interacting]
     Dosage: DOSE INCREASED TO 10MG

REACTIONS (2)
  - Coagulation time shortened [Unknown]
  - Drug interaction [Unknown]
